FAERS Safety Report 24165429 (Version 3)
Quarter: 2024Q3

REPORT INFORMATION
  Report Type: Report from Study
  Country: PR (occurrence: PR)
  Receive Date: 20240802
  Receipt Date: 20240820
  Transmission Date: 20241016
  Serious: Yes (Hospitalization)
  Sender: ABBVIE
  Company Number: PR-ABBVIE-5861803

PATIENT
  Age: 26 Year
  Sex: Female
  Weight: 71 kg

DRUGS (4)
  1. SKYRIZI [Suspect]
     Active Substance: RISANKIZUMAB-RZAA
     Indication: Crohn^s disease
     Dosage: 1 DOSES?FORM STRENGTH: 600 MILLIGRAM
     Route: 042
     Dates: start: 20240423, end: 20240423
  2. SKYRIZI [Suspect]
     Active Substance: RISANKIZUMAB-RZAA
     Indication: Crohn^s disease
     Dosage: 2 DOSES
     Route: 042
     Dates: start: 2024, end: 2024
  3. SKYRIZI [Suspect]
     Active Substance: RISANKIZUMAB-RZAA
     Indication: Crohn^s disease
     Dosage: 3 DOSE
     Route: 042
  4. TYGACIL [Suspect]
     Active Substance: TIGECYCLINE
     Indication: Skin bacterial infection
     Route: 065

REACTIONS (7)
  - Dehydration [Recovered/Resolved]
  - Diarrhoea [Recovered/Resolved]
  - Bacterial infection [Recovering/Resolving]
  - Incorrect route of product administration [Unknown]
  - Nausea [Recovered/Resolved]
  - Limb injury [Recovering/Resolving]
  - Vomiting [Recovered/Resolved]

NARRATIVE: CASE EVENT DATE: 20240508
